FAERS Safety Report 10160593 (Version 1)
Quarter: 2014Q2

REPORT INFORMATION
  Report Type: Spontaneous
  Country: IT (occurrence: IT)
  Receive Date: 20140508
  Receipt Date: 20140508
  Transmission Date: 20141212
  Serious: Yes (Other)
  Sender: FDA-Public Use
  Company Number: IT-ACTAVIS-2014-09106

PATIENT
  Age: 73 Year
  Sex: Male

DRUGS (1)
  1. CARBAMAZEPINE (UNKNOWN) [Suspect]
     Indication: EPILEPSY
     Dosage: 400 MG, BID
     Route: 065

REACTIONS (1)
  - Lichen sclerosus [Recovered/Resolved with Sequelae]
